FAERS Safety Report 16129969 (Version 1)
Quarter: 2019Q1

REPORT INFORMATION
  Report Type: Spontaneous
  Country: US (occurrence: US)
  Receive Date: 20190328
  Receipt Date: 20190328
  Transmission Date: 20190418
  Serious: No
  Sender: FDA-Public Use
  Company Number: US-LEXICON PHARMACEUTICALS, INC-19-1606-00297

PATIENT
  Age: 72 Year
  Sex: Female

DRUGS (13)
  1. AFINITOR [Concomitant]
     Active Substance: EVEROLIMUS
  2. LEVOTHYROXIN [Concomitant]
     Active Substance: LEVOTHYROXINE
  3. OCTREOTIDE. [Concomitant]
     Active Substance: OCTREOTIDE
  4. DEXAMETHASON [Concomitant]
     Active Substance: DEXAMETHASONE
  5. TELOTRISTAT ETHYL [Suspect]
     Active Substance: TELOTRISTAT ETHYL
     Indication: CARCINOID TUMOUR OF THE SMALL BOWEL
     Route: 048
     Dates: start: 20180406
  6. TOPAMAX [Concomitant]
     Active Substance: TOPIRAMATE
  7. VASERETIC [Concomitant]
     Active Substance: ENALAPRIL MALEATE\HYDROCHLOROTHIAZIDE
  8. CALCIUM [Concomitant]
     Active Substance: CALCIUM
  9. POTASSIUM [Concomitant]
     Active Substance: POTASSIUM
  10. HYDROCODON-APAP [Concomitant]
  11. GABAPENTIN. [Concomitant]
     Active Substance: GABAPENTIN
  12. PRAVASTATIN. [Concomitant]
     Active Substance: PRAVASTATIN
  13. MULTIVITAMIN [Concomitant]
     Active Substance: VITAMINS

REACTIONS (1)
  - Urinary tract infection [Unknown]

NARRATIVE: CASE EVENT DATE: 20190311
